FAERS Safety Report 5897708-8 (Version None)
Quarter: 2008Q3

REPORT INFORMATION
  Report Type: 
  Country: None (occurrence: None)
  Receive Date: 20080912
  Receipt Date: 20080908
  Transmission Date: 20090109
  Serious: Yes (Hospitalization)
  Sender: FDA-Public Use
  Company Number: 2008001493

PATIENT
  Age: 68 Year
  Sex: Male
  Weight: 88 kg

DRUGS (11)
  1. ERLOTINIB (ERLOTINIB) [Suspect]
     Indication: NON-SMALL CELL LUNG CANCER
     Dosage: (150 MG, 1 IN 1 D), ORAL
     Route: 048
     Dates: start: 20080226
  2. PEMETREXED              (PEMETREXED) [Suspect]
     Indication: NON-SMALL CELL LUNG CANCER
     Dosage: (500 MG/M2, 1 IN 1 3WK), INTRAVENOUS
     Route: 042
     Dates: start: 20080226
  3. RITUXIMAB             (RITUXIMAB) (SOLUTION) [Suspect]
     Indication: NON-SMALL CELL LUNG CANCER
     Dosage: (500 MG,Q3W), INTRAVENOUS
     Route: 042
     Dates: start: 20080226
  4. PANTOPRAZOLE SODIUM [Concomitant]
  5. GLIMEPIRIDE [Concomitant]
  6. METFORMIN HCL [Concomitant]
  7. METOPROLOL TARTRATE [Concomitant]
  8. HYDROCHLOROTHIAZIDE [Concomitant]
  9. ENOXAPARIN SODIUM [Concomitant]
  10. FOLIC ACID [Concomitant]
  11. VITAMIN B12 [Concomitant]

REACTIONS (3)
  - GENERAL PHYSICAL CONDITION ABNORMAL [None]
  - PANCYTOPENIA [None]
  - PYREXIA [None]
